FAERS Safety Report 4999169-X (Version None)
Quarter: 2006Q2

REPORT INFORMATION
  Report Type: 
  Country: None (occurrence: None)
  Receive Date: 20060511
  Receipt Date: 20060505
  Transmission Date: 20061013
  Serious: Yes (Hospitalization)
  Sender: FDA-Public Use
  Company Number: PHBS2006CH06734

PATIENT
  Age: 82 Year
  Sex: Female

DRUGS (6)
  1. CARBAMAZEPINE [Suspect]
     Indication: TRIGEMINAL NEURALGIA
     Dosage: 600 MG/DAY
     Route: 065
     Dates: start: 20010101
  2. TRAMADOL HCL [Suspect]
     Indication: FACIAL PAIN
     Dosage: 150 TO 300 MG/DAY
     Route: 065
     Dates: start: 20051115, end: 20051216
  3. TRAMADOL HCL [Suspect]
     Dosage: 300 MG/DAY
     Route: 065
     Dates: start: 20051216, end: 20051222
  4. VENLAFAXINE HCL [Suspect]
     Indication: AFFECTIVE DISORDER
     Dosage: 75 MG/DAY
     Route: 065
  5. METOCLOPRAMIDE [Suspect]
     Indication: NAUSEA
     Dosage: 30 MG/DAY
     Route: 065
     Dates: start: 20051216, end: 20051228
  6. ACETAMINOPHEN [Concomitant]
     Dosage: 3000 MG/DAY
     Route: 065
     Dates: start: 20051212

REACTIONS (11)
  - ANXIETY [None]
  - APATHY [None]
  - ASTHENIA [None]
  - DIARRHOEA [None]
  - DYSKINESIA [None]
  - HYPERREFLEXIA [None]
  - MENTAL STATUS CHANGES [None]
  - MYOCLONUS [None]
  - NAUSEA [None]
  - SEROTONIN SYNDROME [None]
  - TREMOR [None]
